FAERS Safety Report 14625023 (Version 1)
Quarter: 2018Q1

REPORT INFORMATION
  Report Type: Spontaneous
  Country: US (occurrence: US)
  Receive Date: 20180312
  Receipt Date: 20180312
  Transmission Date: 20180509
  Serious: Yes (Hospitalization, Other)
  Sender: FDA-Public Use
  Company Number: US-BAYER-2018-046578

PATIENT
  Age: 72 Year
  Sex: Male

DRUGS (1)
  1. MACROGOL 3350 [Suspect]
     Active Substance: POLYETHYLENE GLYCOL 3350
     Indication: BOWEL PREPARATION

REACTIONS (5)
  - Seizure [Recovered/Resolved]
  - Product use in unapproved indication [None]
  - Hyponatraemia [Recovered/Resolved]
  - Encephalopathy [Recovered/Resolved]
  - Off label use [None]
